FAERS Safety Report 17292737 (Version 1)
Quarter: 2020Q1

REPORT INFORMATION
  Report Type: Spontaneous
  Country: US (occurrence: US)
  Receive Date: 20200119
  Receipt Date: 20200119
  Transmission Date: 20200409
  Serious: Yes (Other)
  Sender: FDA-Public Use
  Company Number: None

PATIENT
  Age: 49 Year
  Sex: Female
  Weight: 72.45 kg

DRUGS (16)
  1. CPAP [Concomitant]
     Active Substance: DEVICE
  2. NYSTATIN. [Concomitant]
     Active Substance: NYSTATIN
  3. ADVAIR HFA [Concomitant]
     Active Substance: FLUTICASONE PROPIONATE\SALMETEROL XINAFOATE
  4. FINSTONE COMPLETE [Concomitant]
  5. NEUPRO [Suspect]
     Active Substance: ROTIGOTINE
     Indication: RESTLESS LEGS SYNDROME
     Dosage: ?          QUANTITY:1 PATCH(ES);?
     Route: 062
     Dates: start: 20190101, end: 20200101
  6. SEROQUEL [Concomitant]
     Active Substance: QUETIAPINE FUMARATE
  7. FUROSEMIDE. [Concomitant]
     Active Substance: FUROSEMIDE
  8. OMEPRAZOLE. [Concomitant]
     Active Substance: OMEPRAZOLE
  9. COMPAZINE [Concomitant]
     Active Substance: PROCHLORPERAZINE MALEATE
  10. ROPINOROLE [Concomitant]
     Active Substance: ROPINIROLE
  11. PROZAC [Concomitant]
     Active Substance: FLUOXETINE HYDROCHLORIDE
  12. VENTOLIN [Concomitant]
     Active Substance: ALBUTEROL SULFATE
  13. BUTALBITAL APAP [Concomitant]
  14. VITAMIN D [Concomitant]
     Active Substance: VITAMIN D NOS
  15. FLONASE [Concomitant]
     Active Substance: FLUTICASONE PROPIONATE
  16. CALCIUM/VITAMIN D3 [Concomitant]

REACTIONS (4)
  - Application site burn [None]
  - Application site scar [None]
  - Drug ineffective [None]
  - Application site pruritus [None]
